FAERS Safety Report 6735566-X (Version None)
Quarter: 2010Q2

REPORT INFORMATION
  Report Type: 
  Country: None (occurrence: None)
  Receive Date: 20100521
  Receipt Date: 20100518
  Transmission Date: 20101027
  Serious: Yes (Death, Hospitalization)
  Sender: FDA-Public Use
  Company Number: US-ABBOTT-10P-163-0637003-00

PATIENT
  Age: 84 Year
  Sex: Female
  Weight: 59 kg

DRUGS (20)
  1. BIAXIN [Suspect]
     Indication: HELICOBACTER INFECTION
     Dates: start: 20100310, end: 20100318
  2. FEBUXOSTAT [Suspect]
     Indication: GOUT
     Route: 048
  3. OMEPRAZOLE [Suspect]
     Indication: HELICOBACTER INFECTION
     Dates: start: 20100308, end: 20100318
  4. OMEPRAZOLE [Suspect]
     Indication: GASTRIC ULCER
  5. AMOXICILLIN [Suspect]
     Indication: HELICOBACTER INFECTION
     Dates: start: 20100310, end: 20100318
  6. AMOXICILLIN [Suspect]
     Indication: GASTRIC ULCER
  7. COLCHICINE [Suspect]
     Indication: GOUT
     Dates: start: 20100308, end: 20100316
  8. POTASSIUM [Concomitant]
     Indication: DRUG USE FOR UNKNOWN INDICATION
  9. LIDOCAINE [Concomitant]
     Indication: PAIN
     Dosage: PATCH
  10. REGLAN [Concomitant]
     Indication: DRUG USE FOR UNKNOWN INDICATION
     Dosage: AT BEDTIME
     Dates: start: 20100318, end: 20100320
  11. REGLAN [Concomitant]
  12. MULTI-VITAMIN [Concomitant]
     Indication: DRUG USE FOR UNKNOWN INDICATION
  13. TOPROL-XL [Concomitant]
     Indication: HYPERTENSION
  14. ALL OTHER THERAPEUTIC PRODUCTS [Concomitant]
     Indication: DRUG USE FOR UNKNOWN INDICATION
  15. VICODIN [Concomitant]
     Indication: PAIN
     Dosage: 3 IN 1, AS REQUIRED
     Route: 048
  16. PEPTO-BISMOL [Concomitant]
     Indication: DIARRHOEA
  17. ZOFRAN [Concomitant]
     Indication: NAUSEA
     Route: 042
     Dates: start: 20100317
  18. ZOFRAN [Concomitant]
     Indication: VOMITING
  19. LASIX [Concomitant]
     Indication: DRUG USE FOR UNKNOWN INDICATION
     Dates: start: 20100301
  20. NEUPOGEN [Concomitant]
     Indication: DRUG USE FOR UNKNOWN INDICATION
     Dates: start: 20100301

REACTIONS (12)
  - ATELECTASIS [None]
  - CARDIO-RESPIRATORY ARREST [None]
  - DEHYDRATION [None]
  - NAUSEA [None]
  - NEUTROPENIA [None]
  - NON-HODGKIN'S LYMPHOMA [None]
  - PANCYTOPENIA [None]
  - PNEUMONIA [None]
  - RENAL FAILURE ACUTE [None]
  - SEPSIS [None]
  - THROMBOCYTOPENIA [None]
  - VOMITING [None]
